FAERS Safety Report 17440510 (Version 2)
Quarter: 2020Q2

REPORT INFORMATION
  Report Type: Spontaneous
  Country: US (occurrence: US)
  Receive Date: 20200220
  Receipt Date: 20200601
  Transmission Date: 20200713
  Serious: Yes (Other)
  Sender: FDA-Public Use
  Company Number: US-BAYER-2020-027822

PATIENT
  Age: 58 Year
  Sex: Male

DRUGS (1)
  1. MACROGOL 3350 [Suspect]
     Active Substance: POLYETHYLENE GLYCOL 3350
     Indication: COLONOSCOPY
     Dosage: UNK

REACTIONS (7)
  - Angioedema [None]
  - Syncope [None]
  - Dyspnoea [None]
  - Urticaria [None]
  - Off label use [None]
  - Product use in unapproved indication [None]
  - Anaphylactic reaction [None]
